FAERS Safety Report 7946302-3 (Version None)
Quarter: 2011Q4

REPORT INFORMATION
  Report Type: 
  Country: None (occurrence: None)
  Receive Date: 20111129
  Receipt Date: 20111124
  Transmission Date: 20120403
  Serious: Yes (Hospitalization)
  Sender: FDA-Public Use
  Company Number: MY-B.I. PHARMACEUTICALS,INC./RIDGEFIELD-2011-CS-00497MD

PATIENT
  Age: 71 Year
  Sex: Female

DRUGS (8)
  1. LASIX [Concomitant]
     Dates: start: 20101026
  2. PRADAXA [Suspect]
     Indication: CEREBROVASCULAR ACCIDENT PROPHYLAXIS
     Dosage: 220 MG
     Route: 048
     Dates: start: 20110324
  3. SPIRONOLACTONE [Concomitant]
     Dates: start: 20110307
  4. CONCOR [Concomitant]
     Dates: start: 20101026
  5. SIMVASTATIN [Concomitant]
     Dates: start: 20101026
  6. PRADAXA [Suspect]
     Route: 048
     Dates: start: 20110519
  7. LEVOTHYROXINE SODIUM [Concomitant]
     Dates: start: 20110610
  8. PREDNISOLONE [Concomitant]
     Indication: POLYARTHRITIS
     Dosage: 5MG AS WHEN REQUIRED

REACTIONS (2)
  - STEVENS-JOHNSON SYNDROME [None]
  - CHEST PAIN [None]
